FAERS Safety Report 11818332 (Version 1)
Quarter: 2015Q4

REPORT INFORMATION
  Report Type: Spontaneous
  Country: US (occurrence: None)
  Receive Date: 20151209
  Receipt Date: 20151209
  Transmission Date: 20160305
  Serious: Yes (Hospitalization)
  Sender: FDA-Public Use
  Company Number: None

PATIENT
  Age: 91 Year
  Sex: Male

DRUGS (14)
  1. WARFARIN 3MG PO TTHSS [Suspect]
     Active Substance: WARFARIN
     Dosage: PO ?TTHSS
     Route: 048
  2. ATENOLOL. [Concomitant]
     Active Substance: ATENOLOL
  3. PROSCAR [Concomitant]
     Active Substance: FINASTERIDE
  4. ECOTRIN [Suspect]
     Active Substance: ASPIRIN
     Indication: ATRIAL FIBRILLATION
     Dosage: THERAPY ?CHRONIC
     Route: 048
  5. AMARYL [Concomitant]
     Active Substance: GLIMEPIRIDE
  6. ZOCOR [Concomitant]
     Active Substance: SIMVASTATIN
  7. ZOFRAN [Concomitant]
     Active Substance: ONDANSETRON HYDROCHLORIDE
  8. WARFARIN 2MG PO MWF [Suspect]
     Active Substance: WARFARIN
     Dosage: 2MG PO MWF
     Route: 048
  9. LANOXIN [Concomitant]
     Active Substance: DIGOXIN
  10. NORCO [Concomitant]
     Active Substance: ACETAMINOPHEN\HYDROCODONE BITARTRATE
  11. ECOTRIN [Suspect]
     Active Substance: ASPIRIN
     Indication: CORONARY ARTERY DISEASE
     Dosage: THERAPY ?CHRONIC
     Route: 048
  12. IMDUR [Concomitant]
     Active Substance: ISOSORBIDE MONONITRATE
  13. PLAVIX [Suspect]
     Active Substance: CLOPIDOGREL BISULFATE
     Indication: ATRIAL FIBRILLATION
     Dosage: THERAPY?CHRONIC
     Route: 048
  14. PLAVIX [Suspect]
     Active Substance: CLOPIDOGREL BISULFATE
     Indication: CORONARY ARTERY DISEASE
     Dosage: THERAPY?CHRONIC
     Route: 048

REACTIONS (3)
  - Diverticulum intestinal haemorrhagic [None]
  - Lower gastrointestinal haemorrhage [None]
  - Colon cancer recurrent [None]
